FAERS Safety Report 5177794-3 (Version None)
Quarter: 2006Q4

REPORT INFORMATION
  Report Type: 
  Country: None (occurrence: None)
  Receive Date: 20061218
  Receipt Date: 20060803
  Transmission Date: 20070319
  Serious: No
  Sender: FDA-Public Use
  Company Number: US-AMGEN-KDL188942

PATIENT
  Sex: Female

DRUGS (3)
  1. ENBREL [Suspect]
     Indication: RHEUMATOID ARTHRITIS
     Route: 058
     Dates: start: 20060728
  2. PLAQUENIL [Concomitant]
     Dates: start: 20041028
  3. SULFASALAZINE [Concomitant]
     Dates: start: 20041028

REACTIONS (2)
  - INJECTION SITE IRRITATION [None]
  - TUBERCULOSIS SKIN TEST POSITIVE [None]
